FAERS Safety Report 17337615 (Version 1)
Quarter: 2020Q1

REPORT INFORMATION
  Report Type: Spontaneous
  Country: US (occurrence: US)
  Receive Date: 20200129
  Receipt Date: 20200129
  Transmission Date: 20200409
  Serious: No
  Sender: FDA-Public Use
  Company Number: US-CIPLA LTD.-2019US07760

PATIENT

DRUGS (9)
  1. GABAPENTIN. [Suspect]
     Active Substance: GABAPENTIN
     Dosage: 600 MILLIGRAM, BID (2 CAPSULES IN THE MORNING AND 2 CAPSULES IN THE EVENING)
     Route: 048
     Dates: start: 20191111
  2. TAGAMET [Concomitant]
     Active Substance: CIMETIDINE
     Indication: DYSPEPSIA
     Dosage: UNK
     Route: 065
  3. TRULANCE [Concomitant]
     Active Substance: PLECANATIDE
     Indication: IRRITABLE BOWEL SYNDROME
     Dosage: 3 MILLIGRAM
     Route: 065
  4. DOMPERIDONE [Concomitant]
     Active Substance: DOMPERIDONE
     Indication: GASTRIC DISORDER
     Dosage: 10 MILLIGRAM, PRN
     Route: 065
  5. VERAPAMIL [Concomitant]
     Active Substance: VERAPAMIL HYDROCHLORIDE
     Indication: HYPERTENSION
     Dosage: 180 MILLIGRAM, QD
     Route: 065
  6. OMEPRAZOLE. [Concomitant]
     Active Substance: OMEPRAZOLE
     Indication: GASTRIC DISORDER
     Dosage: 40 MILLIGRAM, QD
     Route: 065
  7. DULOXETINE. [Concomitant]
     Active Substance: DULOXETINE
     Indication: PRODUCT USED FOR UNKNOWN INDICATION
     Dosage: 30 MILLIGRAM, QD
     Route: 065
  8. GABAPENTIN. [Suspect]
     Active Substance: GABAPENTIN
     Indication: NEURALGIA
     Dosage: 300 MILLIGRAM
     Route: 048
     Dates: start: 201710
  9. ASPIRIN [ACETYLSALICYLIC ACID] [Concomitant]
     Active Substance: ASPIRIN
     Indication: CARDIAC DISORDER
     Dosage: 81 MILLIGRAM, QD
     Route: 065

REACTIONS (12)
  - Wrong technique in product usage process [Unknown]
  - Gastric disorder [Unknown]
  - Hyperhidrosis [Unknown]
  - Malaise [Unknown]
  - Hypophagia [Unknown]
  - Fatigue [Unknown]
  - Gastroenteritis viral [Unknown]
  - Off label use [Unknown]
  - Product use in unapproved indication [Unknown]
  - Product physical issue [Unknown]
  - Nausea [Unknown]
  - Insomnia [Unknown]
